FAERS Safety Report 16485526 (Version 1)
Quarter: 2019Q2

REPORT INFORMATION
  Report Type: Spontaneous
  Country: DK (occurrence: DK)
  Receive Date: 20190627
  Receipt Date: 20190627
  Transmission Date: 20190711
  Serious: Yes (Life-Threatening, Hospitalization, Other)
  Sender: FDA-Public Use
  Company Number: DK-BAUSCH-BL-2019-017685

PATIENT
  Age: 42 Year
  Sex: Male
  Weight: 90 kg

DRUGS (2)
  1. VERAPAMIL [Suspect]
     Active Substance: VERAPAMIL HYDROCHLORIDE
     Indication: SUICIDE ATTEMPT
     Dosage: VERAPAMIL RETARD EXTENDED RELEASE, 100 TABLETS TOTAL
     Route: 048
  2. ENALAPRIL [Suspect]
     Active Substance: ENALAPRIL
     Indication: SUICIDE ATTEMPT
     Dosage: 100 TABLETS IN TOTAL
     Route: 048

REACTIONS (14)
  - Respiratory failure [Recovering/Resolving]
  - Rhythm idioventricular [Recovering/Resolving]
  - Intentional overdose [Recovering/Resolving]
  - Hypothermia [Recovering/Resolving]
  - Hyperhidrosis [Recovering/Resolving]
  - Tachycardia [Recovering/Resolving]
  - Atrioventricular block complete [Recovering/Resolving]
  - Mental status changes [Recovering/Resolving]
  - Bradycardia [Recovering/Resolving]
  - Pulmonary oedema [Recovering/Resolving]
  - Hypotension [Recovering/Resolving]
  - Anuria [Recovered/Resolved]
  - Toxicity to various agents [Recovering/Resolving]
  - Bezoar [Recovering/Resolving]
